FAERS Safety Report 6846600-0 (Version None)
Quarter: 2010Q3

REPORT INFORMATION
  Report Type: 
  Country: None (occurrence: None)
  Receive Date: 20100715
  Receipt Date: 20070919
  Transmission Date: 20110219
  Serious: Yes (Other)
  Sender: FDA-Public Use
  Company Number: US-PFIZER INC-2007078897

PATIENT
  Sex: Female
  Weight: 58.1 kg

DRUGS (3)
  1. CHANTIX [Suspect]
     Indication: SMOKING CESSATION THERAPY
     Dates: start: 20070909, end: 20070918
  2. REMERON [Concomitant]
  3. ATIVAN [Concomitant]

REACTIONS (8)
  - ABDOMINAL PAIN UPPER [None]
  - DEPRESSION [None]
  - INFLUENZA LIKE ILLNESS [None]
  - NERVOUSNESS [None]
  - SUICIDAL IDEATION [None]
  - THINKING ABNORMAL [None]
  - UNEVALUABLE EVENT [None]
  - VISION BLURRED [None]
